FAERS Safety Report 24243675 (Version 4)
Quarter: 2025Q3

REPORT INFORMATION
  Report Type: Spontaneous
  Country: CA (occurrence: CA)
  Receive Date: 20240823
  Receipt Date: 20250801
  Transmission Date: 20251020
  Serious: Yes (Hospitalization)
  Sender: TAKEDA
  Company Number: CA-TAKEDA-2024TUS082441

PATIENT
  Age: 30 Year
  Sex: Male

DRUGS (45)
  1. HUMAN IMMUNOGLOBULIN G [Suspect]
     Active Substance: HUMAN IMMUNOGLOBULIN G
     Indication: Guillain-Barre syndrome
     Dosage: UNK UNK, QD
  2. HUMAN IMMUNOGLOBULIN G [Suspect]
     Active Substance: HUMAN IMMUNOGLOBULIN G
  3. VENLAFAXINE HYDROCHLORIDE [Suspect]
     Active Substance: VENLAFAXINE HYDROCHLORIDE
     Indication: Neuralgia
  4. VENLAFAXINE HYDROCHLORIDE [Suspect]
     Active Substance: VENLAFAXINE HYDROCHLORIDE
     Indication: Guillain-Barre syndrome
  5. FENTANYL [Suspect]
     Active Substance: FENTANYL
     Indication: Neuralgia
  6. FENTANYL [Suspect]
     Active Substance: FENTANYL
     Indication: Guillain-Barre syndrome
  7. FENTANYL [Suspect]
     Active Substance: FENTANYL
     Dosage: 37.5 MILLIGRAM, QD
  8. ACETAMINOPHEN [Suspect]
     Active Substance: ACETAMINOPHEN
     Indication: Neuralgia
     Dosage: 3900 MILLIGRAM, QD
  9. ACETAMINOPHEN [Suspect]
     Active Substance: ACETAMINOPHEN
     Indication: Guillain-Barre syndrome
  10. ACETAMINOPHEN [Suspect]
     Active Substance: ACETAMINOPHEN
  11. ACETAMINOPHEN [Suspect]
     Active Substance: ACETAMINOPHEN
     Indication: Neuralgia
  12. ACETAMINOPHEN [Suspect]
     Active Substance: ACETAMINOPHEN
     Indication: Guillain-Barre syndrome
  13. DICLOFENAC DIETHYLAMINE [Suspect]
     Active Substance: DICLOFENAC DIETHYLAMINE
     Indication: Guillain-Barre syndrome
  14. DICLOFENAC SODIUM [Suspect]
     Active Substance: DICLOFENAC SODIUM
     Indication: Neuralgia
  15. DILAUDID [Suspect]
     Active Substance: HYDROMORPHONE HYDROCHLORIDE
     Indication: Guillain-Barre syndrome
     Dosage: 30 MILLIGRAM, QD
  16. DILAUDID [Suspect]
     Active Substance: HYDROMORPHONE HYDROCHLORIDE
     Indication: Neuralgia
     Dosage: 7 MILLIGRAM, QD
  17. GABAPENTIN [Suspect]
     Active Substance: GABAPENTIN
     Indication: Neuralgia
     Dosage: 900 MILLIGRAM, QD
  18. GABAPENTIN [Suspect]
     Active Substance: GABAPENTIN
     Indication: Guillain-Barre syndrome
     Dosage: 3600 MILLIGRAM, QD
  19. GABAPENTIN [Suspect]
     Active Substance: GABAPENTIN
  20. GABAPENTIN [Suspect]
     Active Substance: GABAPENTIN
  21. HYDROMORPHONE [Suspect]
     Active Substance: HYDROMORPHONE
     Indication: Neuralgia
  22. HYDROMORPHONE [Suspect]
     Active Substance: HYDROMORPHONE
     Indication: Guillain-Barre syndrome
  23. HYDROMORPHONE [Suspect]
     Active Substance: HYDROMORPHONE
  24. HYDROMORPHONE [Suspect]
     Active Substance: HYDROMORPHONE
  25. IBUPROFEN [Suspect]
     Active Substance: IBUPROFEN
     Indication: Neuralgia
     Dosage: 1600 MILLIGRAM, QD
  26. IBUPROFEN [Suspect]
     Active Substance: IBUPROFEN
     Indication: Guillain-Barre syndrome
  27. KETAMINE HYDROCHLORIDE [Suspect]
     Active Substance: KETAMINE HYDROCHLORIDE
     Indication: Neuralgia
  28. KETAMINE HYDROCHLORIDE [Suspect]
     Active Substance: KETAMINE HYDROCHLORIDE
     Indication: Guillain-Barre syndrome
     Dosage: 40 MILLIGRAM, QD
  29. KETAMINE HYDROCHLORIDE [Suspect]
     Active Substance: KETAMINE HYDROCHLORIDE
  30. KETAMINE HYDROCHLORIDE [Suspect]
     Active Substance: KETAMINE HYDROCHLORIDE
  31. LIDOCAINE [Suspect]
     Active Substance: LIDOCAINE
     Indication: Neuralgia
  32. LIDOCAINE [Suspect]
     Active Substance: LIDOCAINE
     Indication: Guillain-Barre syndrome
  33. LIDOCAINE [Suspect]
     Active Substance: LIDOCAINE
     Route: 061
  34. NABILONE [Suspect]
     Active Substance: NABILONE
     Indication: Neuralgia
     Dosage: 2 MILLIGRAM, QD
  35. NABILONE [Suspect]
     Active Substance: NABILONE
     Indication: Guillain-Barre syndrome
     Dosage: 6 MILLIGRAM, QD
  36. NABILONE [Suspect]
     Active Substance: NABILONE
  37. NABILONE [Suspect]
     Active Substance: NABILONE
  38. OLANZAPINE [Suspect]
     Active Substance: OLANZAPINE
     Indication: Neuralgia
     Dosage: 2.5 MILLIGRAM, QD
  39. OLANZAPINE [Suspect]
     Active Substance: OLANZAPINE
     Indication: Guillain-Barre syndrome
     Dosage: 3 MILLIGRAM, QD
  40. OLANZAPINE [Suspect]
     Active Substance: OLANZAPINE
  41. PHENYTOIN [Suspect]
     Active Substance: PHENYTOIN
     Indication: Neuralgia
     Dosage: 1500 MILLIGRAM, QD
  42. PHENYTOIN [Suspect]
     Active Substance: PHENYTOIN
  43. ZOPICLONE [Suspect]
     Active Substance: ZOPICLONE
     Indication: Neuralgia
  44. ZOPICLONE [Suspect]
     Active Substance: ZOPICLONE
     Indication: Guillain-Barre syndrome
  45. HYDROMORPHONE HYDROCHLORIDE [Suspect]
     Active Substance: HYDROMORPHONE HYDROCHLORIDE
     Indication: Neuralgia

REACTIONS (4)
  - Inspiratory capacity decreased [Unknown]
  - Incorrect dose administered [Unknown]
  - Drug ineffective [Unknown]
  - Drug ineffective for unapproved indication [Unknown]
